FAERS Safety Report 7109894-2 (Version None)
Quarter: 2010Q4

REPORT INFORMATION
  Report Type: 
  Country: None (occurrence: None)
  Receive Date: 20101118
  Receipt Date: 20101116
  Transmission Date: 20110411
  Serious: Yes (Other)
  Sender: FDA-Public Use
  Company Number: US-BRISTOL-MYERS SQUIBB COMPANY-15389398

PATIENT
  Sex: Male

DRUGS (1)
  1. COUMADIN [Suspect]
     Dosage: STARTED 9 - 10 YRS AGO

REACTIONS (3)
  - INTERNATIONAL NORMALISED RATIO DECREASED [None]
  - JOINT DISLOCATION [None]
  - LOWER LIMB FRACTURE [None]
